FAERS Safety Report 9033802 (Version 2)
Quarter: 2013Q4

REPORT INFORMATION
  Report Type: Report from Study
  Country: BR (occurrence: BR)
  Receive Date: 20130128
  Receipt Date: 20131024
  Transmission Date: 20140711
  Serious: Yes (Hospitalization, Other)
  Sender: FDA-Public Use
  Company Number: BR-AMGEN-BRACT2012023401

PATIENT
  Age: 61 Year
  Sex: Female
  Weight: 54 kg

DRUGS (22)
  1. ETANERCEPT [Suspect]
     Indication: PSORIATIC ARTHROPATHY
     Dosage: 50 MG, QWK
     Route: 058
     Dates: start: 201110
  2. ETANERCEPT [Suspect]
     Indication: RHEUMATOID ARTHRITIS
     Dosage: UNK
     Route: 065
  3. ETANERCEPT [Suspect]
     Dosage: 50 MG, ONCE WEEKLY
     Route: 058
     Dates: start: 2012, end: 201307
  4. ETANERCEPT [Suspect]
     Dosage: UNK
     Route: 065
  5. ATENOLOL [Concomitant]
     Indication: HYPERTENSION
     Dosage: 25 MG, ONCE WEEKLY
     Route: 048
     Dates: start: 2001
  6. ENDRONAX [Concomitant]
     Dosage: 70 MG, WEEKLY
     Dates: start: 2010
  7. PRELONE                            /00016201/ [Concomitant]
     Indication: PAIN
     Dosage: 7.5 MG, 1X/DAY
     Dates: start: 2006
  8. ARAVA [Concomitant]
     Indication: ARTHRITIS
     Dosage: 20 MG, 1X/DAY
     Dates: start: 201010
  9. MELOXICAM [Concomitant]
     Indication: PAIN
     Dosage: 15 MG, AS NEEDED
     Dates: start: 201104
  10. CLORANA [Concomitant]
     Dosage: 25 MG, 1X/DAY
     Dates: start: 2010
  11. LIPLESS [Concomitant]
     Indication: BLOOD CHOLESTEROL
     Dosage: 10 MG, 1X/DAY
  12. RANITIDINE HYDROCHLORIDE [Concomitant]
     Indication: GASTRIC DISORDER
     Dosage: 150 MG, 1X/DAY
  13. ALENDRONATE SODIUM [Concomitant]
     Indication: BLOOD TRIGLYCERIDES
     Dosage: 70 MG, 1X/DAY
  14. LEVOID [Concomitant]
     Indication: THYROID DISORDER
     Dosage: 38 MG, 1X/DAY
  15. PROFLAM [Concomitant]
     Indication: PAIN
     Dosage: 100 MG, AS NEEDED
  16. HYDROCHLOROTHIAZIDE [Concomitant]
     Indication: HYPERTENSION
     Dosage: 25 MG, 1X/DAY
  17. GLIFAGE [Concomitant]
     Indication: THYROID DISORDER
     Dosage: 500 MG, 1X/DAY
     Route: 048
  18. ZETIA [Concomitant]
     Indication: BLOOD CHOLESTEROL
     Dosage: 10 MG, 1X/DAY
  19. DEPURAN                            /00618701/ [Concomitant]
     Indication: VITAMIN SUPPLEMENTATION
     Dosage: 20 MG, UNK
  20. DORFLEX [Concomitant]
     Indication: PAIN
     Dosage: UNK, AS NEEDED
  21. CHOLESTYRAMINE [Concomitant]
     Indication: BLOOD CHOLESTEROL ABNORMAL
     Dosage: UNK
  22. PURAN T4 [Concomitant]
     Dosage: 88 MG, 1X/DAY
     Route: 048

REACTIONS (15)
  - Decreased immune responsiveness [Unknown]
  - Arthropathy [Unknown]
  - Bedridden [Not Recovered/Not Resolved]
  - Procedural pain [Unknown]
  - Carotid artery occlusion [Unknown]
  - Spinal osteoarthritis [Unknown]
  - Musculoskeletal pain [Not Recovered/Not Resolved]
  - Pain in extremity [Not Recovered/Not Resolved]
  - Movement disorder [Not Recovered/Not Resolved]
  - Arthralgia [Unknown]
  - Back pain [Unknown]
  - Blood glucose abnormal [Unknown]
  - Nosocomial infection [Unknown]
  - Postoperative wound infection [Unknown]
  - Device related infection [Unknown]
